FAERS Safety Report 9075886 (Version 1)
Quarter: 2013Q1

REPORT INFORMATION
  Report Type: Spontaneous
  Country: US (occurrence: US)
  Receive Date: 20130130
  Receipt Date: 20130130
  Transmission Date: 20140127
  Serious: No
  Sender: FDA-Public Use
  Company Number: US-ASTRAZENECA-2012SE96510

PATIENT
  Age: 53 Year
  Sex: Male

DRUGS (1)
  1. NEXIUM [Suspect]
     Indication: GASTROOESOPHAGEAL REFLUX DISEASE
     Route: 048

REACTIONS (3)
  - Choking [Unknown]
  - Sleep disorder due to general medical condition, insomnia type [Unknown]
  - Drug dose omission [Unknown]
